FAERS Safety Report 18289219 (Version 3)
Quarter: 2024Q1

REPORT INFORMATION
  Report Type: Spontaneous
  Country: US (occurrence: US)
  Receive Date: 20200921
  Receipt Date: 20240112
  Transmission Date: 20240409
  Serious: No
  Sender: FDA-Public Use
  Company Number: US-PFIZER INC-2020362912

PATIENT
  Age: 74 Year
  Sex: Female

DRUGS (1)
  1. IBRANCE [Suspect]
     Active Substance: PALBOCICLIB
     Dosage: 75 MG, CYCLIC DAILY FOR 2 WEEKS THEN TAKE 2 WEEKS OFF
     Route: 048

REACTIONS (4)
  - Dyspnoea [Unknown]
  - Weight increased [Unknown]
  - Rash [Unknown]
  - Off label use [Unknown]
